FAERS Safety Report 10015787 (Version 2)
Quarter: 2014Q2

REPORT INFORMATION
  Report Type: Spontaneous
  Country: US (occurrence: US)
  Receive Date: 20140317
  Receipt Date: 20140422
  Transmission Date: 20141212
  Serious: Yes (Other)
  Sender: FDA-Public Use
  Company Number: US-VIIV HEALTHCARE LIMITED-A1063732A

PATIENT
  Age: 59 Year
  Sex: Female

DRUGS (2)
  1. TIVICAY [Suspect]
     Indication: HIV INFECTION
     Dosage: 50MG TWICE PER DAY
     Route: 048
  2. TRUVADA [Concomitant]

REACTIONS (1)
  - Diabetes mellitus inadequate control [Recovering/Resolving]
